FAERS Safety Report 8080153 (Version 2)
Quarter: 2014Q1

REPORT INFORMATION
  Report Type: Spontaneous
  Country: US (occurrence: US)
  Receive Date: 20110808
  Receipt Date: 20140221
  Transmission Date: 20141002
  Serious: Yes (Other)
  Sender: FDA-Public Use
  Company Number: US-GLAXOSMITHKLINE-A0864671A

PATIENT
  Age: 58 Year
  Sex: Female
  Weight: 90.9 kg

DRUGS (2)
  1. AVANDAMET [Suspect]
     Indication: TYPE 2 DIABETES MELLITUS
     Route: 048
     Dates: start: 200408, end: 200502
  2. AVANDIA [Suspect]
     Indication: TYPE 2 DIABETES MELLITUS
     Dosage: 4MG FOUR TIMES PER DAY
     Route: 048
     Dates: start: 200505, end: 200607

REACTIONS (6)
  - Cardiac failure congestive [Not Recovered/Not Resolved]
  - Palpitations [Unknown]
  - Dyspnoea [Unknown]
  - Asthenia [Unknown]
  - Myocardial ischaemia [Unknown]
  - Angina pectoris [Unknown]
